FAERS Safety Report 14770184 (Version 1)
Quarter: 2018Q2

REPORT INFORMATION
  Report Type: Spontaneous
  Country: US (occurrence: US)
  Receive Date: 20180417
  Receipt Date: 20180417
  Transmission Date: 20180711
  Serious: Yes (Other)
  Sender: FDA-Public Use
  Company Number: US-PFIZER INC-2018152609

PATIENT
  Age: 68 Year
  Sex: Female
  Weight: 76.2 kg

DRUGS (3)
  1. CHANTIX [Suspect]
     Active Substance: VARENICLINE TARTRATE
     Dosage: 1MG TABLET ONCE DAILY IN THE MORNING
     Dates: end: 201803
  2. SPIRIVA [Suspect]
     Active Substance: TIOTROPIUM BROMIDE MONOHYDRATE
     Indication: BRONCHIAL DISORDER
     Dosage: 1 BREATHING CAPSULE IN A HANDHELD DEAL ONCE DAILY EVERY MORNING
     Dates: start: 2013
  3. CHANTIX [Suspect]
     Active Substance: VARENICLINE TARTRATE
     Indication: SMOKING CESSATION THERAPY
     Dosage: 1 MG, 2X/DAY (THE MORNING ONES AND THE EVENING ONES)
     Dates: start: 201711

REACTIONS (5)
  - Abnormal dreams [Unknown]
  - Dyspnoea [Recovering/Resolving]
  - Cough [Unknown]
  - Aspiration [Recovered/Resolved with Sequelae]
  - Insomnia [Unknown]

NARRATIVE: CASE EVENT DATE: 20180325
